FAERS Safety Report 4375455-1 (Version None)
Quarter: 2004Q2

REPORT INFORMATION
  Report Type: 
  Country: None (occurrence: None)
  Receive Date: 20040607
  Receipt Date: 20040525
  Transmission Date: 20050107
  Serious: Yes (Death)
  Sender: FDA-Public Use
  Company Number: 2002066670

PATIENT
  Age: 34 Year
  Sex: Female
  Weight: 95.2554 kg

DRUGS (1)
  1. LITHANE [Suspect]
     Indication: ILL-DEFINED DISORDER

REACTIONS (2)
  - ACCIDENT [None]
  - DRUG TOXICITY [None]
